FAERS Safety Report 21615351 (Version 2)
Quarter: 2022Q4

REPORT INFORMATION
  Report Type: Spontaneous
  Country: IN (occurrence: IN)
  Receive Date: 20221118
  Receipt Date: 20221121
  Transmission Date: 20230112
  Serious: Yes (Hospitalization, Other)
  Sender: FDA-Public Use
  Company Number: IN-GLAXOSMITHKLINE-INCH2022GSK044340

PATIENT
  Age: 55 Year
  Sex: Male

DRUGS (3)
  1. TERBINAFINE [Interacting]
     Active Substance: TERBINAFINE
     Indication: Tinea infection
     Dosage: UNK
     Route: 048
  2. TERBINAFINE [Interacting]
     Active Substance: TERBINAFINE
     Indication: Fungal infection
  3. WARFARIN [Interacting]
     Active Substance: WARFARIN
     Indication: Pulmonary embolism
     Dosage: UNK
     Route: 065

REACTIONS (19)
  - Intestinal haematoma [Recovered/Resolved]
  - Abdominal pain [Recovered/Resolved]
  - Vomiting [Recovered/Resolved]
  - Constipation [Recovered/Resolved]
  - Small intestinal obstruction [Recovered/Resolved]
  - Toxicity to various agents [Recovered/Resolved]
  - Spontaneous haematoma [Recovered/Resolved]
  - Tachycardia [Recovered/Resolved]
  - Tenderness [Recovered/Resolved]
  - Flatulence [Recovered/Resolved]
  - Gastrointestinal wall thickening [Recovered/Resolved]
  - Anaemia [Recovered/Resolved]
  - Leukocytosis [Recovered/Resolved]
  - Anorectal disorder [Recovered/Resolved]
  - Intestinal cyst [Recovered/Resolved]
  - Coagulation test abnormal [Recovered/Resolved]
  - International normalised ratio increased [Recovered/Resolved]
  - Prothrombin time prolonged [Recovered/Resolved]
  - Drug interaction [Unknown]
